FAERS Safety Report 21722432 (Version 1)
Quarter: 2022Q4

REPORT INFORMATION
  Report Type: Spontaneous
  Country: US (occurrence: US)
  Receive Date: 20221213
  Receipt Date: 20221213
  Transmission Date: 20230113
  Serious: Yes (Death)
  Sender: FDA-Public Use
  Company Number: US-G1 THERAPEUTICS-2022G1US0000264

PATIENT

DRUGS (1)
  1. COSELA [Suspect]
     Active Substance: TRILACICLIB DIHYDROCHLORIDE
     Indication: Small cell lung cancer
     Dosage: 600 MG (DAYS 1-3 OF EACH CYCLE)
     Route: 042

REACTIONS (1)
  - Death [Fatal]
